FAERS Safety Report 20435809 (Version 3)
Quarter: 2022Q3

REPORT INFORMATION
  Report Type: Report from Study
  Country: IL (occurrence: IL)
  Receive Date: 20220207
  Receipt Date: 20220926
  Transmission Date: 20221026
  Serious: Yes (Death, Life-Threatening, Hospitalization, Other)
  Sender: FDA-Public Use
  Company Number: IL-ABBVIE-22K-082-4265061-00

PATIENT
  Age: 57 Year
  Sex: Male
  Weight: 90 kg

DRUGS (10)
  1. VENETOCLAX [Suspect]
     Active Substance: VENETOCLAX
     Indication: Chronic lymphocytic leukaemia
     Dosage: 20 MG DOSE INCREASE ACCORDING TO VENETOCLAX DOSE TITRATION SCHEME
     Route: 048
     Dates: start: 20210423, end: 20210429
  2. VENETOCLAX [Suspect]
     Active Substance: VENETOCLAX
     Indication: Chronic lymphocytic leukaemia
     Dosage: 50 MG OTHER ADVERSE EVENT (NON-HEMATOLOGIC TOXICITIES),
     Route: 048
     Dates: start: 20210430, end: 20210502
  3. VENETOCLAX [Suspect]
     Active Substance: VENETOCLAX
     Indication: Chronic lymphocytic leukaemia
     Dosage: 10 MG
     Route: 048
     Dates: start: 20210909, end: 20210909
  4. ALLOPURINOL [Concomitant]
     Active Substance: ALLOPURINOL
     Indication: Prophylaxis
     Route: 065
     Dates: start: 20210422, end: 202105
  5. XULTOPHY 100/3.6 [Concomitant]
     Active Substance: INSULIN DEGLUDEC\LIRAGLUTIDE
     Indication: Diabetes mellitus
     Route: 065
     Dates: start: 20190612
  6. JARDIANCE [Concomitant]
     Active Substance: EMPAGLIFLOZIN
     Indication: Diabetes mellitus
     Route: 065
     Dates: start: 20190905
  7. SIMVAXON [Concomitant]
     Indication: Hypercholesterolaemia
     Route: 065
     Dates: start: 20110411
  8. ZYPREXA [Concomitant]
     Active Substance: OLANZAPINE
     Indication: Schizophrenia
     Route: 065
     Dates: start: 20131120
  9. PFIZER-BIONTECH COVID-19 VACCINE [Concomitant]
     Active Substance: TOZINAMERAN
     Indication: COVID-19 immunisation
     Dosage: 1 DOSE ONCE
     Route: 030
     Dates: start: 20210117, end: 20210117
  10. PFIZER-BIONTECH COVID-19 VACCINE [Concomitant]
     Active Substance: TOZINAMERAN
     Indication: COVID-19 immunisation
     Dosage: 1 DOSE ONCE
     Route: 030
     Dates: start: 20210207, end: 20210207

REACTIONS (4)
  - Respiratory failure [Fatal]
  - Respiratory failure [Recovered/Resolved]
  - Respiratory failure [Fatal]
  - Pneumonitis [Recovered/Resolved]

NARRATIVE: CASE EVENT DATE: 20210503
